FAERS Safety Report 14028505 (Version 1)
Quarter: 2017Q3

REPORT INFORMATION
  Report Type: Spontaneous
  Country: CA (occurrence: CA)
  Receive Date: 20170928
  Receipt Date: 20170928
  Transmission Date: 20171128
  Serious: Yes (Hospitalization)
  Sender: FDA-Public Use
  Company Number: CA-GLENMARK PHARMACEUTICALS-2017GMK028988

PATIENT
  Age: 39 Year
  Sex: Female

DRUGS (2)
  1. HYDROCORTISONE BUTYRATE. [Suspect]
     Active Substance: HYDROCORTISONE BUTYRATE
     Indication: OPTIC NEURITIS
     Dosage: 150 MG (STRESS DOSES)
     Route: 042
  2. PREDNISOLONE. [Suspect]
     Active Substance: PREDNISOLONE
     Indication: OPTIC NEURITIS
     Dosage: 60 MG, QD
     Route: 048

REACTIONS (1)
  - Coronary artery dissection [Recovered/Resolved]
